FAERS Safety Report 14698570 (Version 1)
Quarter: 2018Q1

REPORT INFORMATION
  Report Type: Spontaneous
  Country: US (occurrence: US)
  Receive Date: 20180330
  Receipt Date: 20180330
  Transmission Date: 20180509
  Serious: No
  Sender: FDA-Public Use
  Company Number: US-SHIRE-US201810410

PATIENT
  Sex: Female
  Weight: 45.35 kg

DRUGS (1)
  1. XIIDRA [Suspect]
     Active Substance: LIFITEGRAST
     Indication: DRY EYE
     Dosage: 1 GTT, UNK
     Route: 047
     Dates: start: 20180125, end: 20180307

REACTIONS (3)
  - Drug ineffective [Recovered/Resolved]
  - Instillation site lacrimation [Recovered/Resolved]
  - Instillation site discomfort [Recovered/Resolved]
